FAERS Safety Report 20590160 (Version 6)
Quarter: 2022Q2

REPORT INFORMATION
  Report Type: Report from Study
  Country: US (occurrence: US)
  Receive Date: 20220314
  Receipt Date: 20220621
  Transmission Date: 20220720
  Serious: Yes (Other)
  Sender: FDA-Public Use
  Company Number: US-NOVARTISTESTPH-NVSC2022US058482

PATIENT
  Age: 47 Year
  Sex: Female
  Weight: 112 kg

DRUGS (48)
  1. ENTRESTO [Suspect]
     Active Substance: SACUBITRIL\VALSARTAN
     Indication: Product used for unknown indication
     Dosage: 1 DOSAGE FORM (49/51 MG)
     Route: 065
     Dates: start: 20211006
  2. ENTRESTO [Suspect]
     Active Substance: SACUBITRIL\VALSARTAN
     Dosage: 1 DOSAGE FORM, BID (49/51 MG)
     Route: 048
  3. SULFAMETHOXAZOLE AND TRIMETHOPRIM [Suspect]
     Active Substance: SULFAMETHOXAZOLE\TRIMETHOPRIM
     Indication: Product used for unknown indication
     Dosage: UNK
     Route: 065
  4. SIMVASTATIN [Concomitant]
     Active Substance: SIMVASTATIN
     Indication: Product used for unknown indication
     Dosage: UNK
     Route: 065
  5. LEVONORGESTREL AND ETHINYL ESTRADIOL [Concomitant]
     Active Substance: ETHINYL ESTRADIOL\LEVONORGESTREL
     Indication: Product used for unknown indication
     Dosage: UNK
     Route: 065
  6. PROVENTIL [Concomitant]
     Active Substance: ALBUTEROL
     Indication: Product used for unknown indication
     Dosage: UNK, PRN (TABLET SIZE 90 MCG/ACTUATION (INHALE EVERY 6 HOURS, INHALE 2 PUFFS EVERY 6 HOURS INHALATIO
     Route: 055
  7. PROVENTIL [Concomitant]
     Active Substance: ALBUTEROL
     Dosage: UNK, Q6H (INHALED)
     Route: 055
  8. PROVENTIL [Concomitant]
     Active Substance: ALBUTEROL
     Dosage: 2 DOSAGE FORM, Q6H (2 PUFFS)
     Route: 055
  9. VENTOLIN [Concomitant]
     Active Substance: ALBUTEROL SULFATE
     Indication: Product used for unknown indication
     Dosage: UNK, PRN (TABLET SIZE 90 MCG/ACTUATION (INHALE EVERY 6 HOURS, INHALE 2 PUFFS EVERY 6 HOURS INHALATIO
     Route: 055
  10. ZYLOPRIM [Concomitant]
     Active Substance: ALLOPURINOL
     Indication: Product used for unknown indication
     Dosage: 1 DOSAGE FORM, QD (TAKE 200 MG BY MOUTH IN THE MORNING)
     Route: 065
     Dates: start: 20210730
  11. ASTELIN [Concomitant]
     Active Substance: AZELASTINE HYDROCHLORIDE
     Indication: Product used for unknown indication
     Dosage: 137 UG, BID (AEROSOL, SPRAY), ADMINISTER 1 SPRAY INTO EACH NOSTRIL 2 TIMES A DAY USE IN EACH NOSTRIL
     Route: 065
     Dates: start: 20210518, end: 20220222
  12. SYMBICORT [Concomitant]
     Active Substance: BUDESONIDE\FORMOTEROL FUMARATE DIHYDRATE
     Indication: Product used for unknown indication
     Dosage: 2 DOSAGE FORM, BID
     Route: 065
     Dates: start: 20220111
  13. SYMBICORT [Concomitant]
     Active Substance: BUDESONIDE\FORMOTEROL FUMARATE DIHYDRATE
     Dosage: 2 DOSAGE FORM, Q12H- (2 PUFFS BY MOUTH)
     Route: 048
     Dates: end: 20220222
  14. CINNAMON [Concomitant]
     Active Substance: CINNAMON
     Indication: Product used for unknown indication
     Dosage: 1 DOSAGE FORM, QD (500 MG)
     Route: 048
     Dates: start: 20170912
  15. KLONOPIN [Concomitant]
     Active Substance: CLONAZEPAM
     Indication: Anxiety
     Dosage: 1 DOSAGE FORM, BID (TAKE 0.5 MG BY MOUTH 2 TIMES A DAY AS NEEDE FOR ANXIETY)
     Route: 048
     Dates: start: 20170725
  16. KLONOPIN [Concomitant]
     Active Substance: CLONAZEPAM
     Dosage: 1 DOSAGE FORM, PRN (TAKE ONE TO 2 TABLETS BY MOUTH TWICE A DAY AS NEEDED FOR ANXIETY)
     Route: 048
  17. COLCHICINE [Concomitant]
     Active Substance: COLCHICINE
     Indication: Product used for unknown indication
     Dosage: 1 DOSAGE FORM, QD (0.6 MG IN MORNING)
     Route: 048
     Dates: start: 20210413
  18. EPIPEN [Concomitant]
     Active Substance: EPINEPHRINE
     Indication: Product used for unknown indication
     Dosage: 1 DOSAGE FORM, QD (INJECT ONE SYRINGE INTO THIGH, SHOULDER, BUTTOCKS)
     Route: 065
     Dates: start: 20151116
  19. EPIPEN [Concomitant]
     Active Substance: EPINEPHRINE
     Dosage: 1 DOSAGE FORM, PRN (INTO MUSCLE) (AUTO INJECTOR)
     Route: 065
  20. ALLEGRA [Concomitant]
     Active Substance: FEXOFENADINE HYDROCHLORIDE
     Indication: Product used for unknown indication
     Dosage: 1 DOSAGE FORM, QD (TAKE 1 TABLET BY MOUTH EVERY EVENING)
     Route: 048
     Dates: start: 20170912, end: 20220222
  21. PROZAC [Concomitant]
     Active Substance: FLUOXETINE HYDROCHLORIDE
     Indication: Product used for unknown indication
     Dosage: 2 DOSAGE FORM, QD (TAKE 2 CAPSULE IN EVERY EVENING BY MOUTH)
     Route: 048
     Dates: start: 20170225
  22. FLONASE [Concomitant]
     Active Substance: FLUTICASONE PROPIONATE
     Indication: Product used for unknown indication
     Dosage: 2 DOSAGE FORM, QD (ADMINSTRED 2 SPRAYS INTO EACH NOSTRIL EVERY EVENING, APPLY 2 SPRAYS IN AFFECTED N
     Route: 065
     Dates: start: 20171020
  23. LASIX [Concomitant]
     Active Substance: FUROSEMIDE
     Indication: Hypervolaemia
     Dosage: 1 DOSAGE FORM, PRN (TAKE 1 TABLET 20 MG BY MOUTH DAILY AS NEEDED)
     Route: 048
     Dates: start: 20210607
  24. ICOSAPENT ETHYL [Concomitant]
     Active Substance: ICOSAPENT ETHYL
     Indication: Product used for unknown indication
     Dosage: 2 DOSAGE FORM, BID (TAKE 2 GRAMS BY MOUTH)
     Route: 048
  25. LACTOBACILLUS ACIDOPHILUS [Concomitant]
     Active Substance: LACTOBACILLUS ACIDOPHILUS
     Indication: Product used for unknown indication
     Dosage: 1 DOSAGE FORM, Q8H
     Route: 048
  26. XOPENEX [Concomitant]
     Active Substance: LEVALBUTEROL HYDROCHLORIDE
     Indication: Dyspnoea
     Dosage: 1 DOSAGE FORM, PRN (TAKE 3 ML BY NEBULIZER FOUR TIMES A DAY AS NEEDED)
     Route: 065
     Dates: start: 20220111, end: 20220222
  27. XOPENEX [Concomitant]
     Active Substance: LEVALBUTEROL HYDROCHLORIDE
     Indication: Wheezing
  28. XOPENEX HFA [Concomitant]
     Active Substance: LEVALBUTEROL TARTRATE
     Indication: Dyspnoea
     Dosage: 2 DOSAGE FORM, PRN (INHALE 2 PUFFS 4 TIMES A DAY AS NEEDED
     Route: 065
     Dates: start: 20190619, end: 20220222
  29. XOPENEX HFA [Concomitant]
     Active Substance: LEVALBUTEROL TARTRATE
     Indication: Wheezing
  30. GLUCOPHAGE [Concomitant]
     Active Substance: METFORMIN HYDROCHLORIDE
     Indication: Product used for unknown indication
     Dosage: 1 DOSAGE FORM, BID (1000 MG)
     Route: 048
     Dates: start: 20170719
  31. SINGULAIR [Concomitant]
     Active Substance: MONTELUKAST SODIUM
     Indication: Product used for unknown indication
     Dosage: 1 DOSAGE FORM, QD (TAKE ONE TABLET BY MOUTH EVERY EVENING)
     Route: 048
     Dates: start: 20220111, end: 20220222
  32. VITAMINS [Concomitant]
     Active Substance: VITAMINS
     Indication: Product used for unknown indication
     Dosage: 1 DOSAGE FORM, QD
     Route: 048
  33. LOVAZA [Concomitant]
     Active Substance: OMEGA-3-ACID ETHYL ESTERS
     Indication: Product used for unknown indication
     Dosage: 1 DOSAGE FORM, Q8H
     Route: 048
  34. DELTASONE [Concomitant]
     Active Substance: PREDNISONE
     Indication: Product used for unknown indication
     Dosage: 1 DOSAGE FORM, QD (TAKE 3 TABLETS FOR FIRST 3 DAYS)
     Route: 048
  35. DELTASONE [Concomitant]
     Active Substance: PREDNISONE
     Dosage: 1 DOSAGE FORM (2 TABLETS FOR NEXT 3 DAYS)
     Route: 048
  36. DELTASONE [Concomitant]
     Active Substance: PREDNISONE
     Dosage: 1 DOSAGE FORM (1 TABLET FOR 3 DAYS, THEN STOP)
     Route: 065
  37. COENZYME Q10 [Concomitant]
     Active Substance: DIETARY SUPPLEMENT\UBIDECARENONE
     Indication: Product used for unknown indication
     Dosage: 1 DOSAGE FORM, QD (30 MG)
     Route: 048
  38. UNSPECIFIED INGREDIENT [Concomitant]
     Active Substance: UNSPECIFIED INGREDIENT
     Indication: Product used for unknown indication
     Dosage: UNK
     Route: 065
  39. PRAVASTATIN [Concomitant]
     Active Substance: PRAVASTATIN
     Indication: Product used for unknown indication
     Dosage: 1 DOSAGE FORM, QD
     Route: 048
  40. ALBUTEROL SULFATE [Concomitant]
     Active Substance: ALBUTEROL SULFATE
     Indication: Wheezing
     Dosage: 1 DOSAGE FORM, Q6H (90 UG)
     Route: 055
  41. ALBUTEROL SULFATE [Concomitant]
     Active Substance: ALBUTEROL SULFATE
     Dosage: 2 DOSAGE FORM, PRN (INHALE 2 PUFFS EVERY 6 HOURS INHALATION)
     Route: 055
  42. VOLTAREN [Concomitant]
     Active Substance: DICLOFENAC SODIUM
     Indication: Product used for unknown indication
     Dosage: 1 DOSAGE FORM, PRN (APPLY 4 G TOPICALLY 3 TIMES A DAY AS NEEDED)
     Route: 061
     Dates: start: 20210407, end: 20220207
  43. NEURONTIN [Concomitant]
     Active Substance: GABAPENTIN
     Indication: Product used for unknown indication
     Dosage: 1 DOSAGE FORM, QD (300 MG)
     Route: 048
     Dates: start: 20210407
  44. LIPITOR [Concomitant]
     Active Substance: ATORVASTATIN CALCIUM
     Indication: Product used for unknown indication
     Dosage: 1 DOSAGE FORM (20 MG)
     Route: 065
  45. ZITHROMAX [Concomitant]
     Active Substance: AZITHROMYCIN DIHYDRATE
     Indication: Product used for unknown indication
     Dosage: 1 DOSAGE FORM (250 MG)
     Route: 065
  46. BACTROBAN [Concomitant]
     Active Substance: MUPIROCIN\MUPIROCIN CALCIUM
     Indication: Product used for unknown indication
     Dosage: 1 DOSAGE FORM (2 %)
     Route: 065
  47. KENALOG [Concomitant]
     Active Substance: TRIAMCINOLONE ACETONIDE
     Indication: Product used for unknown indication
     Dosage: 1 DOSAGE FORM (0.1 %)
     Route: 065
  48. PRAVACHOL [Concomitant]
     Active Substance: PRAVASTATIN SODIUM
     Indication: Product used for unknown indication
     Dosage: 1 DOSAGE FORM, QD (10 MG)
     Route: 048
     Dates: start: 20220207

REACTIONS (30)
  - Neuropathy peripheral [Unknown]
  - Cardiac failure chronic [Unknown]
  - Type 2 diabetes mellitus [Unknown]
  - Left ventricular failure [Unknown]
  - Malignant hypertension [Unknown]
  - Biliary dilatation [Unknown]
  - Steatohepatitis [Unknown]
  - Hypokalaemia [Unknown]
  - Feeling abnormal [Unknown]
  - Weight fluctuation [Unknown]
  - Musculoskeletal pain [Unknown]
  - Pain [Unknown]
  - Hyperlipidaemia [Unknown]
  - Asthma [Unknown]
  - Obesity [Unknown]
  - Coronavirus infection [Unknown]
  - Depression [Unknown]
  - Gastrooesophageal reflux disease [Unknown]
  - Palpitations [Unknown]
  - Blood glucose abnormal [Unknown]
  - Vitamin D deficiency [Unknown]
  - Uterine leiomyoma [Unknown]
  - Sleep apnoea syndrome [Unknown]
  - Arthralgia [Unknown]
  - Arthropathy [Unknown]
  - Thyroid mass [Unknown]
  - Hypersensitivity [Unknown]
  - Swelling face [Unknown]
  - Hyperhidrosis [Unknown]
  - Throat clearing [Unknown]

NARRATIVE: CASE EVENT DATE: 20220201
